FAERS Safety Report 21731976 (Version 2)
Quarter: 2023Q1

REPORT INFORMATION
  Report Type: Other
  Country: GB (occurrence: GB)
  Receive Date: 20221215
  Receipt Date: 20230103
  Transmission Date: 20230417
  Serious: Yes (Death, Other)
  Sender: FDA-Public Use
  Company Number: GB-MHRA-MED-202212031023384250-SRMCN

PATIENT

DRUGS (3)
  1. GABAPENTIN [Suspect]
     Active Substance: GABAPENTIN
     Indication: Analgesic therapy
     Dosage: 300 MILLIGRAM, OD
     Route: 065
     Dates: start: 20191014
  2. GABAPENTIN [Suspect]
     Active Substance: GABAPENTIN
     Indication: Compartment syndrome
  3. FLUOXETINE [Concomitant]
     Active Substance: FLUOXETINE HYDROCHLORIDE
     Indication: Bipolar disorder
     Dosage: 40 MILLIGRAM (TAKING FOR MANY YEARS, 10+?)
     Route: 065

REACTIONS (4)
  - Completed suicide [Fatal]
  - Condition aggravated [Unknown]
  - Mental impairment [Unknown]
  - Suicidal ideation [Unknown]
